FAERS Safety Report 8774881 (Version 6)
Quarter: 2012Q4

REPORT INFORMATION
  Report Type: 
  Country: US (occurrence: US)
  Receive Date: 20120910
  Receipt Date: 20121210
  Transmission Date: 20130627
  Serious: Yes (Other)
  Sender: FDA-Public Use
  Company Number: US-BIOGENIDEC-2012BI034571

PATIENT
  Age: 40 Year
  Sex: Male

DRUGS (4)
  1. TYSABRI [Suspect]
     Indication: MULTIPLE SCLEROSIS
     Route: 042
     Dates: start: 20090514, end: 20091112
  2. TYSABRI [Suspect]
     Indication: MULTIPLE SCLEROSIS
     Route: 042
     Dates: start: 20091210, end: 20110602
  3. TYSABRI [Suspect]
     Indication: MULTIPLE SCLEROSIS
     Route: 042
     Dates: start: 20111121, end: 20120806
  4. TYSABRI [Suspect]
     Indication: MULTIPLE SCLEROSIS
     Route: 042

REACTIONS (11)
  - Multiple sclerosis [Unknown]
  - Drug ineffective [Not Recovered/Not Resolved]
  - Insomnia [Unknown]
  - Vertigo [Recovered/Resolved]
  - Speech disorder [Unknown]
  - Erythema [Unknown]
  - Viral infection [Recovered/Resolved]
  - Pyrexia [Recovered/Resolved]
  - Eye disorder [Recovered/Resolved]
  - Anxiety [Not Recovered/Not Resolved]
  - Mental impairment [Not Recovered/Not Resolved]
